FAERS Safety Report 14937186 (Version 1)
Quarter: 2018Q2

REPORT INFORMATION
  Report Type: Spontaneous
  Country: US (occurrence: US)
  Receive Date: 20180525
  Receipt Date: 20180525
  Transmission Date: 20180711
  Serious: Yes (Other)
  Sender: FDA-Public Use
  Company Number: US-WEST-WARD PHARMACEUTICALS CORP.-US-H14001-18-04203

PATIENT
  Sex: Male

DRUGS (1)
  1. TESTOSTERONE CYPIONATE 2000MG/10ML VIAL [Suspect]
     Active Substance: TESTOSTERONE CYPIONATE
     Indication: BLOOD TESTOSTERONE DECREASED
     Route: 030
     Dates: start: 20171205

REACTIONS (3)
  - Cellulitis [Recovering/Resolving]
  - Injection site infection [Recovering/Resolving]
  - Suspected transmission of an infectious agent via product [Unknown]
